FAERS Safety Report 16053243 (Version 1)
Quarter: 2019Q1

REPORT INFORMATION
  Report Type: Spontaneous
  Country: IT (occurrence: IT)
  Receive Date: 20190308
  Receipt Date: 20190308
  Transmission Date: 20190418
  Serious: Yes (Other)
  Sender: FDA-Public Use
  Company Number: IT-BAYER-2018-082854

PATIENT
  Age: 61 Year
  Sex: Male

DRUGS (2)
  1. NEXAVAR [Suspect]
     Active Substance: SORAFENIB
     Indication: HEPATIC NEOPLASM
     Dosage: 400 MG, QD
     Route: 048
     Dates: start: 20170102, end: 20170601
  2. NEXAVAR [Suspect]
     Active Substance: SORAFENIB
     Indication: HEPATIC NEOPLASM
     Dosage: 400 MG, UNK

REACTIONS (10)
  - Genital rash [Unknown]
  - Weight decreased [Recovering/Resolving]
  - Pruritus [Unknown]
  - Gingival bleeding [Recovering/Resolving]
  - Somnolence [Recovering/Resolving]
  - Nausea [Recovering/Resolving]
  - Vomiting [Recovering/Resolving]
  - Rash [Recovering/Resolving]
  - Haematochezia [Recovering/Resolving]
  - Teeth brittle [Recovering/Resolving]

NARRATIVE: CASE EVENT DATE: 20170315
